FAERS Safety Report 18585735 (Version 1)
Quarter: 2020Q4

REPORT INFORMATION
  Report Type: Spontaneous
  Country: US (occurrence: US)
  Receive Date: 20201207
  Receipt Date: 20201207
  Transmission Date: 20210114
  Serious: No
  Sender: FDA-Public Use
  Company Number: US-ANTARES PHARMA, INC.-2020-POS-MX-0678

PATIENT
  Age: 58 Year
  Sex: Female

DRUGS (4)
  1. ORENCIA [Suspect]
     Active Substance: ABATACEPT
     Indication: RHEUMATOID ARTHRITIS
     Dosage: UNK
  2. OTREXUP [Suspect]
     Active Substance: METHOTREXATE
     Indication: ARTHROPATHY
  3. ORENCIA [Suspect]
     Active Substance: ABATACEPT
     Indication: ARTHROPATHY
  4. OTREXUP [Suspect]
     Active Substance: METHOTREXATE
     Indication: RHEUMATOID ARTHRITIS
     Dosage: 25 MG/0.4ML, QWK
     Route: 058
     Dates: start: 20191105

REACTIONS (1)
  - Pain in extremity [Unknown]
